FAERS Safety Report 19440392 (Version 1)
Quarter: 2021Q2

REPORT INFORMATION
  Report Type: Report from Study
  Country: US (occurrence: US)
  Receive Date: 20210621
  Receipt Date: 20210621
  Transmission Date: 20210717
  Serious: No
  Sender: FDA-Public Use
  Company Number: NVSC2021US131342

PATIENT
  Sex: Male

DRUGS (1)
  1. KESIMPTA [Suspect]
     Active Substance: OFATUMUMAB
     Indication: RELAPSING MULTIPLE SCLEROSIS
     Dosage: UNK UNK, QW
     Route: 058
     Dates: start: 20210604

REACTIONS (4)
  - Influenza like illness [Unknown]
  - Myalgia [Unknown]
  - Hypersomnia [Unknown]
  - Fatigue [Unknown]
